FAERS Safety Report 6923999-8 (Version None)
Quarter: 2010Q3

REPORT INFORMATION
  Report Type: 
  Country: None (occurrence: None)
  Receive Date: 20100813
  Receipt Date: 20100806
  Transmission Date: 20110219
  Serious: Yes (Hospitalization, Other)
  Sender: FDA-Public Use
  Company Number: DE-ABBOTT-10P-062-0650014-00

PATIENT
  Sex: Female
  Weight: 75 kg

DRUGS (3)
  1. HUMIRA [Suspect]
     Indication: CROHN'S DISEASE
     Route: 058
     Dates: start: 20090812, end: 20100729
  2. BUDESONIDE [Concomitant]
     Indication: PRODUCT USED FOR UNKNOWN INDICATION
     Route: 048
  3. SYSTEMIC STERIODS [Concomitant]
     Indication: CROHN'S DISEASE
     Dosage: SIX TIMES DURING PAST THREE YEARS, DAILYYEARS

REACTIONS (11)
  - ABDOMINAL PAIN [None]
  - ABSCESS [None]
  - ANAL FISSURE [None]
  - ARTHRALGIA [None]
  - COLONIC STENOSIS [None]
  - CROHN'S DISEASE [None]
  - FISTULA [None]
  - ILEUS [None]
  - INFLAMMATION [None]
  - INTESTINAL STENOSIS [None]
  - NEOPLASM [None]
